FAERS Safety Report 6929772-9 (Version None)
Quarter: 2010Q3

REPORT INFORMATION
  Report Type: 
  Country: None (occurrence: None)
  Receive Date: 20100818
  Receipt Date: 20100803
  Transmission Date: 20110219
  Serious: Yes (Hospitalization, Other)
  Sender: FDA-Public Use
  Company Number: PHHY2010FR51845

PATIENT
  Sex: Female

DRUGS (5)
  1. TAREG [Suspect]
     Dosage: 160 MG, ONE TABLET DAILY
     Route: 048
  2. LASIX [Concomitant]
     Dosage: 40 MG, ONE AND HALF TABLET, 60 MG DAILY
     Route: 048
  3. DIGOXIN [Concomitant]
  4. IXPRIM [Concomitant]
  5. ALDACTONE [Concomitant]

REACTIONS (3)
  - CONFUSIONAL STATE [None]
  - CREATININE RENAL CLEARANCE DECREASED [None]
  - RENAL FAILURE ACUTE [None]
